FAERS Safety Report 6175509-3 (Version None)
Quarter: 2009Q2

REPORT INFORMATION
  Report Type: 
  Country: None (occurrence: None)
  Receive Date: 20090429
  Receipt Date: 20090426
  Transmission Date: 20091009
  Serious: Yes (Hospitalization)
  Sender: FDA-Public Use
  Company Number: 2009SP008210

PATIENT
  Age: 62 Year
  Sex: Male
  Weight: 76 kg

DRUGS (9)
  1. PEG-INTRON [Suspect]
     Indication: HEPATITIS C
     Dosage: 120 MCG; QW; SC
     Route: 058
     Dates: start: 20090203, end: 20090426
  2. RIBAVIRIN [Suspect]
     Indication: HEPATITIS C
     Dosage: 800 MG; QD; PO, 600 MG; QD; PO, 400 MG; QD; PO, 200 MG; QD; PO
     Route: 048
     Dates: start: 20090203, end: 20090223
  3. RIBAVIRIN [Suspect]
     Indication: HEPATITIS C
     Dosage: 800 MG; QD; PO, 600 MG; QD; PO, 400 MG; QD; PO, 200 MG; QD; PO
     Route: 048
     Dates: start: 20090224, end: 20090309
  4. RIBAVIRIN [Suspect]
     Indication: HEPATITIS C
     Dosage: 800 MG; QD; PO, 600 MG; QD; PO, 400 MG; QD; PO, 200 MG; QD; PO
     Route: 048
     Dates: start: 20090310, end: 20090419
  5. RIBAVIRIN [Suspect]
     Indication: HEPATITIS C
     Dosage: 800 MG; QD; PO, 600 MG; QD; PO, 400 MG; QD; PO, 200 MG; QD; PO
     Route: 048
     Dates: start: 20090420, end: 20090426
  6. MP-424 (INVESTIGATIONAL DRUG) [Suspect]
     Indication: HEPATITIS C
     Dosage: 2250 MG; QD; PO
     Route: 048
     Dates: start: 20090203, end: 20090417
  7. LOXONIN [Concomitant]
  8. SELBEX [Concomitant]
  9. LENDORMIN D [Concomitant]

REACTIONS (6)
  - DELIRIUM [None]
  - HAEMOGLOBIN DECREASED [None]
  - MALAISE [None]
  - PROSTATITIS [None]
  - RASH [None]
  - VISUAL IMPAIRMENT [None]
